FAERS Safety Report 6871084-6 (Version None)
Quarter: 2010Q3

REPORT INFORMATION
  Report Type: 
  Country: None (occurrence: None)
  Receive Date: 20100721
  Receipt Date: 20100714
  Transmission Date: 20110219
  Serious: Yes (Congenital Anomaly)
  Sender: FDA-Public Use
  Company Number: CL-184-2010

PATIENT
  Age: 14 Day
  Sex: Female

DRUGS (1)
  1. METRONIDAZOLE [Suspect]
     Dosage: 200MG TID TRANSPLACENTAL
     Route: 064

REACTIONS (3)
  - CONGENITAL CARDIOVASCULAR ANOMALY [None]
  - DYSMORPHISM [None]
  - MATERNAL DRUGS AFFECTING FOETUS [None]
